FAERS Safety Report 4480129-2 (Version None)
Quarter: 2004Q4

REPORT INFORMATION
  Report Type: 
  Country: None (occurrence: None)
  Receive Date: 20041020
  Receipt Date: 20020516
  Transmission Date: 20050328
  Serious: Yes (Hospitalization, Disabling)
  Sender: FDA-Public Use
  Company Number: US-MERCK-0205USA02106

PATIENT
  Age: 54 Year
  Sex: Male
  Weight: 77 kg

DRUGS (3)
  1. VIOXX [Suspect]
     Indication: PAIN IN EXTREMITY
     Route: 048
     Dates: start: 20001001, end: 20011001
  2. SOMA [Concomitant]
     Route: 065
  3. ATENOLOL [Concomitant]
     Route: 065

REACTIONS (28)
  - ADVERSE EVENT [None]
  - ANGINA PECTORIS [None]
  - ANGINA UNSTABLE [None]
  - ANXIETY DISORDER [None]
  - ARTHRALGIA [None]
  - BLOOD CHOLESTEROL INCREASED [None]
  - BLOOD GLUCOSE INCREASED [None]
  - CHRONIC FATIGUE SYNDROME [None]
  - CORONARY ARTERY DISEASE [None]
  - DEPRESSION [None]
  - DYSPEPSIA [None]
  - DYSPNOEA [None]
  - GOUT [None]
  - HIGH DENSITY LIPOPROTEIN DECREASED [None]
  - HYPERTENSION [None]
  - HYPOAESTHESIA [None]
  - INSOMNIA [None]
  - JOINT SWELLING [None]
  - LUNG DISORDER [None]
  - LYMPHADENOPATHY [None]
  - MASTOIDITIS [None]
  - MYOCARDIAL INFARCTION [None]
  - PAIN IN EXTREMITY [None]
  - PALPITATIONS [None]
  - PERSONALITY DISORDER [None]
  - RECTAL HAEMORRHAGE [None]
  - SOCIAL PHOBIA [None]
  - VARICOSE VEIN [None]
